FAERS Safety Report 17809807 (Version 4)
Quarter: 2022Q1

REPORT INFORMATION
  Report Type: Other
  Country: CN (occurrence: CN)
  Receive Date: 20200521
  Receipt Date: 20220225
  Transmission Date: 20220423
  Serious: Yes (Other)
  Sender: FDA-Public Use
  Company Number: CN-ROCHE-2602995

PATIENT

DRUGS (3)
  1. ALTEPLASE [Suspect]
     Active Substance: ALTEPLASE
     Indication: Ischaemic stroke
     Dosage: 0.9 MG PER KILOGRAM OF BODY WEIGHT WITH 10% ADMINISTERED AS A BOLUS
     Route: 042
  2. ALTEPLASE [Suspect]
     Active Substance: ALTEPLASE
     Indication: Cerebral vascular occlusion
     Dosage: 90% INFUSED OVER A PERIOD OF 1 HOUR TO A MAXIMUM OF 90 MG
     Route: 042
  3. ALTEPLASE [Suspect]
     Active Substance: ALTEPLASE
     Indication: Vascular occlusion

REACTIONS (1)
  - Contrast media allergy [Unknown]
